FAERS Safety Report 4929389-1 (Version None)
Quarter: 2006Q1

REPORT INFORMATION
  Report Type: 
  Country: None (occurrence: None)
  Receive Date: 20060127
  Receipt Date: 20051214
  Transmission Date: 20060701
  Serious: Yes (Other)
  Sender: FDA-Public Use
  Company Number: 2005169851

PATIENT
  Age: 46 Year
  Sex: Female
  Weight: 49.8957 kg

DRUGS (14)
  1. LYRICA [Suspect]
     Indication: NEUROPATHY
     Dosage: 150 MG (75 MG, 2 IN 1 D)
     Dates: start: 20051214
  2. PEPCID [Concomitant]
  3. LEVSIN (HYOSCYAMINE SULFATE) [Concomitant]
  4. XANAX [Concomitant]
  5. PROMETHAZINE [Concomitant]
  6. MECLIZINE [Concomitant]
  7. FLEXERIL (CYCLOBENAZAPRINE HYDROCHLORIDE) [Concomitant]
  8. POTASSIUM (POTASSIUM) [Concomitant]
  9. EFFEXOR [Concomitant]
  10. OXYCONTIN [Concomitant]
  11. OXYCODONE HCL [Concomitant]
  12. METRONIDAZOLE [Concomitant]
  13. SPIRONOLACTONE [Concomitant]
  14. IRON (IRON) [Concomitant]

REACTIONS (2)
  - DIZZINESS [None]
  - SOMNOLENCE [None]
